FAERS Safety Report 6837212-3 (Version None)
Quarter: 2010Q3

REPORT INFORMATION
  Report Type: 
  Country: None (occurrence: None)
  Receive Date: 20100713
  Receipt Date: 20070505
  Transmission Date: 20110219
  Serious: No
  Sender: FDA-Public Use
  Company Number: US-PFIZER INC-2007037586

PATIENT
  Sex: Female
  Weight: 68.04 kg

DRUGS (7)
  1. CHANTIX [Suspect]
     Indication: SMOKING CESSATION THERAPY
     Dates: start: 20070501
  2. SYNTHROID [Concomitant]
     Indication: THYROID CANCER
  3. ATENOLOL [Concomitant]
  4. XANAX [Concomitant]
  5. CALCIUM [Concomitant]
  6. AMBIEN [Concomitant]
  7. CENTRUM [Concomitant]

REACTIONS (2)
  - NAUSEA [None]
  - VOMITING [None]
